FAERS Safety Report 5811835-2 (Version None)
Quarter: 2008Q3

REPORT INFORMATION
  Report Type: 
  Country: None (occurrence: None)
  Receive Date: 20080715
  Receipt Date: 20080715
  Transmission Date: 20090109
  Serious: Yes (Hospitalization)
  Sender: FDA-Public Use
  Company Number: None

PATIENT
  Age: 61 Year
  Sex: Female
  Weight: 93 kg

DRUGS (2)
  1. DECITABINE 2MG/KG [Suspect]
     Indication: OVARIAN CANCER
     Dosage: 2MG/KG FOR 5 DAYS PER MONTH IV
     Route: 042
     Dates: start: 20080512, end: 20080703
  2. CARBOPLATIN [Suspect]
     Indication: OVARIAN CANCER
     Dosage: AUC5 DAY 8 EACH MO IV
     Route: 042
     Dates: start: 20080520, end: 20080707

REACTIONS (4)
  - CHOLECYSTITIS [None]
  - GASTRECTOMY [None]
  - SMALL INTESTINAL RESECTION [None]
  - TUMOUR PAIN [None]
